FAERS Safety Report 9339356 (Version 1)
Quarter: 2013Q2

REPORT INFORMATION
  Report Type: Spontaneous
  Country: GB (occurrence: GB)
  Receive Date: 20130610
  Receipt Date: 20130610
  Transmission Date: 20140414
  Serious: Yes (Life-Threatening, Hospitalization, Other)
  Sender: FDA-Public Use
  Company Number: GB-NOVOPROD-379378

PATIENT
  Age: 75 Year
  Sex: Female
  Weight: 76 kg

DRUGS (10)
  1. VICTOZA [Suspect]
     Indication: TYPE 2 DIABETES MELLITUS
     Dosage: 1.2 MG, QD
     Route: 058
     Dates: start: 20121215, end: 20130519
  2. VICTOZA [Suspect]
     Indication: OBESITY
  3. NOVOMIX 30 [Concomitant]
     Indication: PRODUCT USED FOR UNKNOWN INDICATION
     Dosage: UNK
  4. ASPIRIN [Concomitant]
     Dosage: UNK
  5. DILTIAZEM [Concomitant]
     Dosage: UNK
     Route: 065
  6. DOXAZOSIN [Concomitant]
     Dosage: UNK
  7. EPROSARTAN [Concomitant]
     Dosage: UNK
  8. EZETIMIBE [Concomitant]
     Dosage: UNK
  9. QVAR [Concomitant]
     Route: 055
  10. SALBUTAMOL [Concomitant]
     Dosage: UNK

REACTIONS (3)
  - Upper gastrointestinal haemorrhage [Recovered/Resolved]
  - Mallory-Weiss syndrome [Recovered/Resolved]
  - Hiatus hernia [Recovered/Resolved]
